FAERS Safety Report 7003177-7 (Version None)
Quarter: 2010Q3

REPORT INFORMATION
  Report Type: 
  Country: None (occurrence: None)
  Receive Date: 20100920
  Receipt Date: 20091204
  Transmission Date: 20110219
  Serious: No
  Sender: FDA-Public Use
  Company Number: US-ASTRAZENECA-2009SE30395

PATIENT
  Sex: Female
  Weight: 46.3 kg

DRUGS (3)
  1. SEROQUEL [Suspect]
     Indication: BIPOLAR DISORDER
     Route: 048
  2. KLONOPIN [Concomitant]
  3. AMBIEN [Concomitant]

REACTIONS (2)
  - CONFUSIONAL STATE [None]
  - DRUG DOSE OMISSION [None]
